FAERS Safety Report 5584727-4 (Version None)
Quarter: 2008Q1

REPORT INFORMATION
  Report Type: 
  Country: None (occurrence: None)
  Receive Date: 20080108
  Receipt Date: 20071227
  Transmission Date: 20080703
  Serious: Yes (Hospitalization, Other)
  Sender: FDA-Public Use
  Company Number: US-PFIZER INC-2007108742

PATIENT
  Sex: Male
  Weight: 77.1 kg

DRUGS (5)
  1. DILANTIN [Suspect]
     Indication: GRAND MAL CONVULSION
     Route: 048
  2. DIAZEPAM [Concomitant]
  3. HYDROCODONE BITARTRATE [Concomitant]
  4. LIPITOR [Concomitant]
  5. SEROQUEL [Concomitant]

REACTIONS (5)
  - ANTICONVULSANT DRUG LEVEL DECREASED [None]
  - CHEST PAIN [None]
  - GRAND MAL CONVULSION [None]
  - HEADACHE [None]
  - PETIT MAL EPILEPSY [None]
